FAERS Safety Report 10013118 (Version 1)
Quarter: 2014Q1

REPORT INFORMATION
  Report Type: Spontaneous
  Country: ES (occurrence: ES)
  Receive Date: 20140314
  Receipt Date: 20140314
  Transmission Date: 20141002
  Serious: Yes (Death)
  Sender: FDA-Public Use
  Company Number: ES-CELGENEUS-144-21660-14030127

PATIENT
  Sex: 0

DRUGS (4)
  1. ABRAXANE [Suspect]
     Indication: PANCREATIC CARCINOMA
     Route: 041
  2. ABRAXANE [Suspect]
     Route: 041
  3. ABRAXANE [Suspect]
     Route: 041
  4. GEMCITABINE [Concomitant]
     Indication: PANCREATIC CARCINOMA
     Route: 065

REACTIONS (9)
  - Death [Fatal]
  - Pancreatic carcinoma metastatic [Unknown]
  - Asthenia [Unknown]
  - Alopecia [Unknown]
  - Neuropathy peripheral [Unknown]
  - Diarrhoea [Unknown]
  - Hypomagnesaemia [Unknown]
  - Thrombocytopenia [Unknown]
  - Neutropenia [Unknown]
